FAERS Safety Report 22139374 (Version 2)
Quarter: 2023Q1

REPORT INFORMATION
  Report Type: Report from Study
  Country: US (occurrence: US)
  Receive Date: 20230327
  Receipt Date: 20230330
  Transmission Date: 20230418
  Serious: No
  Sender: FDA-Public Use
  Company Number: US-002147023-NVSC2023US068689

PATIENT
  Sex: Male

DRUGS (1)
  1. ENTRESTO [Suspect]
     Active Substance: SACUBITRIL\VALSARTAN
     Indication: Product used for unknown indication
     Dosage: 1 DOSAGE FORM, BID
     Route: 048
     Dates: start: 20230223

REACTIONS (6)
  - Pain in extremity [Recovering/Resolving]
  - Erythema [Recovered/Resolved]
  - Flushing [Recovered/Resolved]
  - Tendonitis [Unknown]
  - Condition aggravated [Unknown]
  - Product dose omission in error [Unknown]
